FAERS Safety Report 6848428-4 (Version None)
Quarter: 2010Q3

REPORT INFORMATION
  Report Type: 
  Country: None (occurrence: None)
  Receive Date: 20100716
  Receipt Date: 20100713
  Transmission Date: 20110219
  Serious: Yes (Disabling)
  Sender: FDA-Public Use
  Company Number: IT-MERCK-0710ITA00054

PATIENT
  Age: 60 Year
  Sex: Male

DRUGS (2)
  1. PROSCAR [Suspect]
     Indication: BENIGN PROSTATIC HYPERPLASIA
     Route: 048
     Dates: start: 20040821, end: 20060301
  2. PROSCAR [Suspect]
     Indication: DYSURIA
     Route: 048
     Dates: start: 20040821, end: 20060301

REACTIONS (5)
  - ERECTILE DYSFUNCTION [None]
  - LIBIDO DECREASED [None]
  - PENIS DEVIATION [None]
  - PENIS DISORDER [None]
  - TESTICULAR ATROPHY [None]
